FAERS Safety Report 8363266-1 (Version None)
Quarter: 2012Q2

REPORT INFORMATION
  Report Type: 
  Country: None (occurrence: None)
  Receive Date: 20120516
  Receipt Date: 20111006
  Transmission Date: 20120825
  Serious: No
  Sender: FDA-Public Use
  Company Number: US-GLAXOSMITHKLINE-A0640773A

PATIENT
  Age: 47 Year
  Sex: Female

DRUGS (11)
  1. OMEPRAZOLE [Concomitant]
  2. PROVERA [Concomitant]
  3. UNSPECIFIED MEDICATION [Concomitant]
  4. NASAL IRRIGATION [Concomitant]
  5. HYOSCYAMINE [Concomitant]
  6. BACTROBAN [Suspect]
     Indication: NASAL DRYNESS
     Dosage: 1APP FOUR TIMES PER DAY
     Route: 045
     Dates: start: 20070101
  7. NULEV [Concomitant]
  8. ANTISPASMODIC [Concomitant]
  9. MUPIROCIN [Suspect]
     Indication: PROPHYLAXIS
     Dosage: 1APP SINGLE DOSE
     Route: 045
     Dates: start: 20090101, end: 20090101
  10. SALINE [Concomitant]
  11. NEILMED SINUS RINSE [Concomitant]

REACTIONS (20)
  - DRUG EFFECT DECREASED [None]
  - OVERDOSE [None]
  - MEDICATION RESIDUE [None]
  - HEADACHE [None]
  - THROAT IRRITATION [None]
  - DYSGEUSIA [None]
  - PRODUCT QUALITY ISSUE [None]
  - THERAPEUTIC RESPONSE UNEXPECTED [None]
  - SCAB [None]
  - NASAL DISCOMFORT [None]
  - SENSATION OF PRESSURE [None]
  - PRODUCT ODOUR ABNORMAL [None]
  - SNEEZING [None]
  - SINUS HEADACHE [None]
  - OFF LABEL USE [None]
  - DRUG INEFFECTIVE [None]
  - NASAL DISORDER [None]
  - CONDITION AGGRAVATED [None]
  - SINUS DISORDER [None]
  - EPISTAXIS [None]
